FAERS Safety Report 17075435 (Version 1)
Quarter: 2019Q4

REPORT INFORMATION
  Report Type: Spontaneous
  Country: US (occurrence: US)
  Receive Date: 20191126
  Receipt Date: 20191126
  Transmission Date: 20200122
  Serious: No
  Sender: FDA-Public Use
  Company Number: US-009507513-1911USA010666

PATIENT
  Age: 29 Year
  Sex: Female
  Weight: 111.13 kg

DRUGS (5)
  1. NEXPLANON [Suspect]
     Active Substance: ETONOGESTREL
     Indication: CONTRACEPTION
     Dosage: 1 DOSAGE FORM, UNDERNEATH THE SKIN
     Dates: start: 201609
  2. INSULIN [Concomitant]
     Active Substance: INSULIN NOS
     Dosage: UNK
  3. METFORMIN [Concomitant]
     Active Substance: METFORMIN HYDROCHLORIDE
     Dosage: UNK
  4. ABILIFY [Concomitant]
     Active Substance: ARIPIPRAZOLE
     Dosage: UNK
  5. DEXAMPEX [Concomitant]
     Dosage: UNK

REACTIONS (2)
  - Incorrect product administration duration [Unknown]
  - Blood glucose increased [Not Recovered/Not Resolved]
